FAERS Safety Report 13513945 (Version 1)
Quarter: 2017Q2

REPORT INFORMATION
  Report Type: Spontaneous
  Country: US (occurrence: US)
  Receive Date: 20170504
  Receipt Date: 20170504
  Transmission Date: 20170830
  Serious: No
  Sender: FDA-Public Use
  Company Number: US-PFIZER INC-2017190805

PATIENT
  Sex: Female

DRUGS (1)
  1. XELJANZ XR [Suspect]
     Active Substance: TOFACITINIB CITRATE
     Indication: RHEUMATOID ARTHRITIS
     Dosage: 11 MG, UNK
     Dates: start: 201702

REACTIONS (12)
  - Abdominal pain [Unknown]
  - Arthralgia [Unknown]
  - Fatigue [Unknown]
  - Night sweats [Unknown]
  - Dyspepsia [Unknown]
  - Sleep disorder [Unknown]
  - Weight increased [Unknown]
  - Asthenia [Unknown]
  - Alopecia [Unknown]
  - Dry mouth [Unknown]
  - Myalgia [Unknown]
  - Musculoskeletal stiffness [Unknown]
